FAERS Safety Report 8913909 (Version 1)
Quarter: 2012Q4

REPORT INFORMATION
  Report Type: 
  Country: DE (occurrence: DE)
  Receive Date: 20121119
  Receipt Date: 20121119
  Transmission Date: 20130627
  Serious: Yes (Hospitalization)
  Sender: FDA-Public Use
  Company Number: DE-MERCK-1210DEU011450

PATIENT
  Age: 47 Year
  Sex: Male

DRUGS (2)
  1. PEGINTRON [Suspect]
     Indication: MALIGNANT MELANOMA
     Dosage: 1 DF, qw
     Dates: start: 201111
  2. INTERFERON (UNSPECIFIED) [Concomitant]
     Indication: MALIGNANT MELANOMA

REACTIONS (3)
  - Injection site ulcer [Not Recovered/Not Resolved]
  - Erythema [Unknown]
  - Adverse event [Unknown]
